FAERS Safety Report 13596729 (Version 1)
Quarter: 2017Q2

REPORT INFORMATION
  Report Type: Spontaneous
  Country: US (occurrence: US)
  Receive Date: 20170531
  Receipt Date: 20170531
  Transmission Date: 20170830
  Serious: No
  Sender: FDA-Public Use
  Company Number: US-PFIZER INC-2017234518

PATIENT
  Age: 81 Year
  Sex: Female

DRUGS (1)
  1. FELDENE [Suspect]
     Active Substance: PIROXICAM
     Dosage: UNK

REACTIONS (2)
  - Drug hypersensitivity [Unknown]
  - Stomatitis [Unknown]
